FAERS Safety Report 14092378 (Version 1)
Quarter: 2017Q4

REPORT INFORMATION
  Report Type: Spontaneous
  Country: US (occurrence: None)
  Receive Date: 20171016
  Receipt Date: 20171016
  Transmission Date: 20180321
  Serious: Yes (Hospitalization)
  Sender: FDA-Public Use
  Company Number: None

PATIENT
  Age: 83 Year
  Weight: 59.4 kg

DRUGS (3)
  1. KCENTRA [Suspect]
     Active Substance: COAGULATION FACTOR IX HUMAN\COAGULATION FACTOR VII HUMAN\COAGULATION FACTOR X HUMAN\PROTEIN C\PROTEIN S HUMAN\PROTHROMBIN
  2. XARELTO [Suspect]
     Active Substance: RIVAROXABAN
  3. AMIODARONE TABLETS [Suspect]
     Active Substance: AMIODARONE
     Route: 048

REACTIONS (5)
  - Drug prescribing error [None]
  - Haemorrhage [None]
  - Blood creatinine increased [None]
  - Incorrect dose administered [None]
  - Drug dispensing error [None]
